FAERS Safety Report 19246501 (Version 2)
Quarter: 2021Q4

REPORT INFORMATION
  Report Type: Report from Study
  Country: AT (occurrence: AT)
  Receive Date: 20210512
  Receipt Date: 20211221
  Transmission Date: 20220303
  Serious: Yes (Life-Threatening, Hospitalization)
  Sender: FDA-Public Use
  Company Number: AT-FEDR-MF-002-1561001-20210324-0001SG

PATIENT
  Age: 76 Year
  Sex: Male
  Weight: 94 kg

DRUGS (12)
  1. FEDRATINIB [Suspect]
     Active Substance: FEDRATINIB
     Indication: Myelofibrosis
     Dosage: 400 MG X 1 X 1 DAYS
     Route: 048
     Dates: start: 20210316, end: 20210413
  2. FEDRATINIB [Suspect]
     Active Substance: FEDRATINIB
     Dosage: 200 MG X 1 X 1 DAYS
     Route: 048
     Dates: start: 20210414, end: 20210419
  3. CIPRALEX [Concomitant]
     Active Substance: ESCITALOPRAM OXALATE
     Indication: Depressed mood
     Dosage: 10 MG X 1 X 1 DAYS
     Route: 048
  4. TRAZODONE HYDROCHLORIDE [Concomitant]
     Active Substance: TRAZODONE HYDROCHLORIDE
     Indication: Depressed mood
     Dosage: 150 MG X 1 X 1 DAYS
     Route: 048
     Dates: end: 20210604
  5. LASIX [Concomitant]
     Active Substance: FUROSEMIDE
     Indication: Prophylaxis
     Dosage: 30 MG X 1 X 1 DAYS
     Route: 048
     Dates: start: 20210413, end: 20210420
  6. LOSARTAN [Concomitant]
     Active Substance: LOSARTAN
     Indication: Hypertension
     Dosage: 25 MG X 1 X 1 DAYS
     Route: 048
     Dates: start: 20210408, end: 20210412
  7. LOVENOX [Concomitant]
     Active Substance: ENOXAPARIN SODIUM
     Indication: Thrombosis prophylaxis
     Dosage: 40 MG X 1 X 1 DAYS
     Route: 058
     Dates: start: 20210413, end: 20210426
  8. NEUROBION [Concomitant]
     Active Substance: CYANOCOBALAMIN\PYRIDOXINE\THIAMINE
     Indication: Vitamin supplementation
     Dosage: 100 MG X 3 X 1 DAYS
     Route: 048
     Dates: start: 20210303
  9. PANTOPRAZOLE SODIUM [Concomitant]
     Active Substance: PANTOPRAZOLE SODIUM
     Indication: Gastrointestinal disorder prophylaxis
     Dosage: 20 MG X 1 X 1 DAYS
     Route: 048
     Dates: start: 20210319
  10. ALLOPURINOL [Concomitant]
     Active Substance: ALLOPURINOL
     Indication: Hyperuricaemia
     Dosage: 100 MG X 1 X 1 DAYS
     Route: 048
     Dates: start: 20210123
  11. XARELTO [Concomitant]
     Active Substance: RIVAROXABAN
     Indication: Cerebrovascular accident prophylaxis
     Dosage: 15 MG X 1 X 1 DAYS
     Route: 048
     Dates: start: 20210504
  12. ZOFRAN [Concomitant]
     Active Substance: ONDANSETRON HYDROCHLORIDE
     Indication: Antiemetic supportive care
     Dosage: 8 MG X 1 X 1 DAYS
     Route: 048
     Dates: start: 20210316

REACTIONS (1)
  - Atrial fibrillation [Recovered/Resolved with Sequelae]

NARRATIVE: CASE EVENT DATE: 20210413
